FAERS Safety Report 10892020 (Version 1)
Quarter: 2015Q1

REPORT INFORMATION
  Report Type: Report from Study
  Country: AT (occurrence: AT)
  Receive Date: 20150306
  Receipt Date: 20150306
  Transmission Date: 20150721
  Serious: Yes (Death, Hospitalization)
  Sender: FDA-Public Use
  Company Number: AT-JNJFOC-20131202676

PATIENT
  Age: 84 Year
  Sex: Female
  Weight: 58 kg

DRUGS (47)
  1. XARELTO [Suspect]
     Active Substance: RIVAROXABAN
     Indication: ATRIAL FIBRILLATION
     Route: 048
     Dates: start: 20130515, end: 20130516
  2. LOVENOX [Concomitant]
     Active Substance: ENOXAPARIN SODIUM
     Route: 065
     Dates: start: 20130501, end: 20130514
  3. ROCEPHIN [Concomitant]
     Active Substance: CEFTRIAXONE SODIUM
     Route: 065
     Dates: start: 20130406, end: 20130508
  4. HALCION [Concomitant]
     Active Substance: TRIAZOLAM
     Route: 065
     Dates: start: 20130508, end: 20130509
  5. HYPREN [Concomitant]
     Route: 065
     Dates: end: 20130510
  6. NACL [Concomitant]
     Active Substance: SODIUM CHLORIDE
     Route: 065
     Dates: start: 20131118, end: 20131124
  7. MAGNOSOLV [Concomitant]
     Route: 065
     Dates: start: 20140114, end: 20140125
  8. MAGNOSOLV [Concomitant]
     Route: 065
     Dates: start: 20140111, end: 20140112
  9. PANTOLOC [Concomitant]
     Active Substance: PANTOPRAZOLE SODIUM
     Route: 065
     Dates: start: 20130515, end: 20140125
  10. AMLODIPINE [Concomitant]
     Active Substance: AMLODIPINE BESYLATE
     Route: 065
     Dates: start: 20130514
  11. CYKLOKAPRON [Concomitant]
     Active Substance: TRANEXAMIC ACID
     Route: 065
     Dates: start: 20140111, end: 20140111
  12. TORASEMID [Concomitant]
     Active Substance: TORSEMIDE
     Route: 065
     Dates: start: 20130502, end: 20130510
  13. LOVENOX [Concomitant]
     Active Substance: ENOXAPARIN SODIUM
     Route: 065
     Dates: start: 20131123
  14. LASIX [Concomitant]
     Active Substance: FUROSEMIDE
     Route: 065
     Dates: start: 20140118, end: 20140118
  15. CEFUROXIM [Concomitant]
     Active Substance: CEFUROXIME
     Route: 065
     Dates: start: 20140114, end: 20140127
  16. MORPHINE SULFATE. [Concomitant]
     Active Substance: MORPHINE SULFATE
     Route: 065
  17. XARELTO [Suspect]
     Active Substance: RIVAROXABAN
     Indication: CEREBROVASCULAR ACCIDENT
     Route: 048
     Dates: start: 20131212, end: 20140111
  18. XARELTO [Suspect]
     Active Substance: RIVAROXABAN
     Indication: CEREBROVASCULAR ACCIDENT PROPHYLAXIS
     Route: 048
     Dates: start: 20130517, end: 20131121
  19. CONCOR [Concomitant]
     Active Substance: BISOPROLOL FUMARATE
     Route: 065
     Dates: start: 20131118
  20. KALIORAL [Concomitant]
     Route: 065
     Dates: start: 20130515, end: 20130517
  21. LASIX [Concomitant]
     Active Substance: FUROSEMIDE
     Route: 065
     Dates: start: 20140120, end: 20140125
  22. LASIX [Concomitant]
     Active Substance: FUROSEMIDE
     Route: 065
     Dates: start: 20140126, end: 20140126
  23. XARELTO [Suspect]
     Active Substance: RIVAROXABAN
     Indication: ATRIAL FIBRILLATION
     Route: 048
     Dates: start: 20130517, end: 20131121
  24. XARELTO [Suspect]
     Active Substance: RIVAROXABAN
     Indication: CEREBROVASCULAR ACCIDENT PROPHYLAXIS
     Route: 048
     Dates: start: 20131212, end: 20140111
  25. HALCION [Concomitant]
     Active Substance: TRIAZOLAM
     Route: 065
     Dates: start: 20130510, end: 20130517
  26. XARELTO [Suspect]
     Active Substance: RIVAROXABAN
     Indication: ATRIAL FIBRILLATION
     Route: 048
     Dates: start: 20131212, end: 20140111
  27. CONCOR [Concomitant]
     Active Substance: BISOPROLOL FUMARATE
     Route: 065
     Dates: start: 20130506, end: 20131117
  28. PANTOLOC [Concomitant]
     Active Substance: PANTOPRAZOLE SODIUM
     Route: 065
     Dates: start: 201304, end: 20130514
  29. MAGNONORM [Concomitant]
     Active Substance: MAGNESIUM
     Route: 065
     Dates: start: 20130430, end: 20130516
  30. PLAVIX [Concomitant]
     Active Substance: CLOPIDOGREL BISULFATE
     Route: 065
     Dates: start: 20130430
  31. SPIROBENE [Concomitant]
     Route: 065
     Dates: start: 20130821
  32. PASSEDAN-NERVENTROPFEN [Concomitant]
     Route: 065
     Dates: start: 20131120
  33. NOVALGIN [Concomitant]
     Active Substance: METAMIZOLE SODIUM
     Route: 065
     Dates: start: 20140112, end: 20140113
  34. XARELTO [Suspect]
     Active Substance: RIVAROXABAN
     Indication: CEREBROVASCULAR ACCIDENT
     Route: 048
     Dates: start: 20130515, end: 20130516
  35. KALIORAL [Concomitant]
     Route: 065
     Dates: start: 20131125, end: 20131125
  36. HYPREN [Concomitant]
     Route: 065
     Dates: start: 20130511, end: 20130513
  37. HYDAL [Concomitant]
     Active Substance: HYDROMORPHONE HYDROCHLORIDE
     Route: 065
     Dates: start: 20140115, end: 20140115
  38. XARELTO [Suspect]
     Active Substance: RIVAROXABAN
     Indication: CEREBROVASCULAR ACCIDENT
     Route: 048
     Dates: start: 20130517, end: 20131121
  39. XARELTO [Suspect]
     Active Substance: RIVAROXABAN
     Indication: CEREBROVASCULAR ACCIDENT PROPHYLAXIS
     Route: 048
     Dates: start: 20130515, end: 20130516
  40. BELOC (METOPROLOL TARTRATE) [Concomitant]
     Route: 065
     Dates: start: 20140126, end: 20140126
  41. KALIORAL [Concomitant]
     Route: 065
     Dates: start: 20131123, end: 20131124
  42. LOVENOX [Concomitant]
     Active Substance: ENOXAPARIN SODIUM
     Route: 065
     Dates: start: 20130515, end: 20130515
  43. AKTIFERRIN [Concomitant]
     Active Substance: FERROUS SULFATE\SERINE
     Route: 065
     Dates: start: 20130501, end: 20140125
  44. LASIX [Concomitant]
     Active Substance: FUROSEMIDE
     Route: 065
     Dates: start: 20130821, end: 20131121
  45. AVELOX [Concomitant]
     Active Substance: MOXIFLOXACIN HYDROCHLORIDE
     Route: 065
     Dates: start: 20131118, end: 20131124
  46. NOVALGIN [Concomitant]
     Active Substance: METAMIZOLE SODIUM
     Route: 065
     Dates: start: 20140111, end: 20140111
  47. NOVALGIN [Concomitant]
     Active Substance: METAMIZOLE SODIUM
     Route: 065
     Dates: start: 20131122, end: 20131122

REACTIONS (5)
  - Left ventricular failure [Fatal]
  - Wound [Unknown]
  - Cellulitis [Recovered/Resolved]
  - Concussion [Unknown]
  - Anaemia [Unknown]

NARRATIVE: CASE EVENT DATE: 20131118
